FAERS Safety Report 14393520 (Version 2)
Quarter: 2018Q1

REPORT INFORMATION
  Report Type: Spontaneous
  Country: GB (occurrence: GB)
  Receive Date: 20180116
  Receipt Date: 20180123
  Transmission Date: 20180509
  Serious: Yes (Hospitalization, Other)
  Sender: FDA-Public Use
  Company Number: GB-ASTRAZENECA-2018SE05952

PATIENT
  Age: 5 Month
  Sex: Female
  Weight: 11.5 kg

DRUGS (2)
  1. SYNAGIS [Suspect]
     Active Substance: PALIVIZUMAB
     Indication: PREMATURE BABY
     Dosage: MONTHLY
     Route: 030
     Dates: start: 201610, end: 201612
  2. SYNAGIS [Suspect]
     Active Substance: PALIVIZUMAB
     Indication: PREMATURE BABY
     Dosage: MONTHLY
     Route: 030
     Dates: start: 201710, end: 201801

REACTIONS (8)
  - Pulmonary oedema [Recovering/Resolving]
  - Pneumothorax [Recovering/Resolving]
  - Product use issue [Unknown]
  - Condition aggravated [Recovering/Resolving]
  - Wheezing [Recovering/Resolving]
  - Lung disorder [Not Recovered/Not Resolved]
  - Respiratory syncytial virus infection [Recovering/Resolving]
  - Drug dose omission [Unknown]

NARRATIVE: CASE EVENT DATE: 201610
